FAERS Safety Report 9274819 (Version 1)
Quarter: 2013Q2

REPORT INFORMATION
  Report Type: Spontaneous
  Country: US (occurrence: None)
  Receive Date: 20130501
  Receipt Date: 20130501
  Transmission Date: 20140414
  Serious: No
  Sender: FDA-Public Use
  Company Number: None

PATIENT
  Sex: 0

DRUGS (1)
  1. LEXAPRO [Suspect]
     Dates: start: 20120407

REACTIONS (5)
  - Anxiety [None]
  - Depressed mood [None]
  - Disease recurrence [None]
  - Drug ineffective [None]
  - Product substitution issue [None]
